FAERS Safety Report 25842119 (Version 1)
Quarter: 2025Q3

REPORT INFORMATION
  Report Type: Report from Study
  Country: CA (occurrence: CA)
  Receive Date: 20250924
  Receipt Date: 20250924
  Transmission Date: 20251021
  Serious: Yes (Disabling)
  Sender: AMGEN
  Company Number: CA-002147023-NVSC2025CA136007

PATIENT
  Sex: Female

DRUGS (1)
  1. AIMOVIG [Suspect]
     Active Substance: ERENUMAB-AOOE
     Indication: Migraine
     Route: 065
     Dates: start: 20230616, end: 2025

REACTIONS (3)
  - Migraine [Unknown]
  - Headache [Unknown]
  - Loss of therapeutic response [Unknown]
